FAERS Safety Report 5245380-2 (Version None)
Quarter: 2007Q1

REPORT INFORMATION
  Report Type: 
  Country: None (occurrence: None)
  Receive Date: 20070223
  Receipt Date: 20070212
  Transmission Date: 20070707
  Serious: Yes (Hospitalization)
  Sender: FDA-Public Use
  Company Number: PHBS2007DO02707

PATIENT
  Age: 64 Year
  Sex: Female

DRUGS (1)
  1. ACLASTA [Suspect]
     Indication: OSTEOPOROSIS
     Route: 042
     Dates: start: 20070210

REACTIONS (5)
  - DEPRESSED MOOD [None]
  - DIARRHOEA [None]
  - LEUKOCYTOSIS [None]
  - PYREXIA [None]
  - VOMITING [None]
